FAERS Safety Report 7679354-9 (Version None)
Quarter: 2011Q3

REPORT INFORMATION
  Report Type: 
  Country: None (occurrence: None)
  Receive Date: 20110812
  Receipt Date: 20110803
  Transmission Date: 20111222
  Serious: Yes (Hospitalization)
  Sender: FDA-Public Use
  Company Number: PHHY2011US65690

PATIENT
  Sex: Female

DRUGS (12)
  1. AMOXICILLIN [Concomitant]
  2. DIPHENOXYLATE HCL AND ATROPINE SULFATE [Concomitant]
  3. VITAMIN D [Concomitant]
  4. EXJADE [Suspect]
     Indication: MYELODYSPLASTIC SYNDROME
     Dosage: 2500 MG, QD
     Route: 048
  5. EXJADE [Suspect]
     Indication: ANAEMIA
  6. AVELOX [Concomitant]
  7. PROCTO-GLYVENOL [Concomitant]
  8. CYCLOBENZAPRINE [Concomitant]
  9. NAPROBENE [Concomitant]
  10. NITROFURANTOIN [Concomitant]
  11. METRONIDAZOLE [Concomitant]
  12. ANTIBIOTICS [Concomitant]
     Dosage: UNK UKN, UNK

REACTIONS (6)
  - GASTROENTERITIS [None]
  - RENAL FAILURE ACUTE [None]
  - DIVERTICULUM [None]
  - SYNCOPE [None]
  - DIARRHOEA [None]
  - DEHYDRATION [None]
